FAERS Safety Report 10538160 (Version 1)
Quarter: 2014Q4

REPORT INFORMATION
  Report Type: Spontaneous
  Country: KR (occurrence: KR)
  Receive Date: 20141023
  Receipt Date: 20141023
  Transmission Date: 20150529
  Serious: Yes (Other)
  Sender: FDA-Public Use
  Company Number: KR-PFIZER INC-2014289438

PATIENT
  Age: 38 Year
  Sex: Female

DRUGS (1)
  1. CYTOTEC [Suspect]
     Active Substance: MISOPROSTOL
     Indication: UTERINE CONTRACTIONS DURING PREGNANCY
     Dosage: 8 DF, 200 MCG TABLETS
     Route: 067
     Dates: start: 20110721, end: 20110721

REACTIONS (4)
  - Postpartum hypopituitarism [Not Recovered/Not Resolved]
  - Uterine rupture [Recovered/Resolved]
  - Uterine haemorrhage [Recovered/Resolved]
  - Product use issue [Unknown]

NARRATIVE: CASE EVENT DATE: 20110721
